FAERS Safety Report 19977228 (Version 3)
Quarter: 2021Q4

REPORT INFORMATION
  Report Type: Report from Study
  Country: US (occurrence: US)
  Receive Date: 20211020
  Receipt Date: 20211119
  Transmission Date: 20220304
  Serious: Yes (Other)
  Sender: FDA-Public Use
  Company Number: US-KOREA IPSEN PHARMA-2021-25407

PATIENT
  Age: 54 Year
  Sex: Female

DRUGS (3)
  1. SOMATULINE DEPOT [Suspect]
     Active Substance: LANREOTIDE ACETATE
     Indication: Pituitary tumour benign
     Dosage: DOSE NOT REPORTED
     Route: 058
     Dates: start: 201909, end: 202009
  2. SOMATULINE DEPOT [Suspect]
     Active Substance: LANREOTIDE ACETATE
     Dosage: 60 MG / 0.2 ML EVERY 6 WEEKS
     Route: 058
     Dates: start: 202009
  3. CORTISONE [Concomitant]
     Active Substance: CORTISONE

REACTIONS (4)
  - Surgery [Unknown]
  - Laboratory test abnormal [Recovered/Resolved]
  - Weight decreased [Recovering/Resolving]
  - Off label use [Unknown]

NARRATIVE: CASE EVENT DATE: 20190901
